FAERS Safety Report 8469791-7 (Version None)
Quarter: 2012Q2

REPORT INFORMATION
  Report Type: 
  Country: None (occurrence: None)
  Receive Date: 20120626
  Receipt Date: 20120621
  Transmission Date: 20120825
  Serious: Yes (Death, Hospitalization)
  Sender: FDA-Public Use
  Company Number: GR-ABBOTT-12P-066-0948224-00

PATIENT
  Sex: Male
  Weight: 54 kg

DRUGS (11)
  1. ZEMPLAR [Suspect]
     Indication: SECONDARY HYPERTHYROIDISM
     Route: 042
     Dates: start: 20111227, end: 20120619
  2. SEVELAMER [Concomitant]
     Indication: HYPERPHOSPHATAEMIA
     Route: 048
     Dates: start: 20050526, end: 20120619
  3. DIGOXIN [Concomitant]
     Indication: TACHYCARDIA
     Dosage: 1/2 X 4 WEEKS
     Route: 048
     Dates: start: 20100602, end: 20120619
  4. RANITIDINE [Concomitant]
     Indication: GASTRIC DISORDER
     Dates: start: 20110707, end: 20120619
  5. CLOPIDOGREL [Concomitant]
     Indication: THROMBOSIS
     Route: 048
     Dates: start: 20061102, end: 20120619
  6. ERYTHROPOIETIN A [Concomitant]
     Indication: ANAEMIA
     Dosage: 6000 IU X 3 WEEKS
     Route: 042
     Dates: start: 20050411, end: 20120619
  7. HYDROXYZINE [Concomitant]
     Indication: PRURITUS
     Dates: start: 20080820, end: 20120619
  8. IRON [Concomitant]
     Indication: ANAEMIA
     Dosage: 100 MG X 3 MONTHS
     Route: 042
     Dates: start: 20050411, end: 20120619
  9. AMINO ACIDS [Concomitant]
     Indication: MALNUTRITION
     Dosage: 500 ML X 3 WEEKS
     Route: 042
     Dates: start: 20120308
  10. L-CARNITINE [Concomitant]
     Indication: MUSCLE ATROPHY
     Dosage: 2 GR X 3 WEEKS
     Route: 042
     Dates: start: 20050411
  11. HEPARIN [Concomitant]
     Indication: THROMBOSIS PROPHYLAXIS
     Route: 042
     Dates: start: 20050411

REACTIONS (17)
  - DEHYDRATION [None]
  - LOSS OF CONSCIOUSNESS [None]
  - VASODILATATION [None]
  - CONDITION AGGRAVATED [None]
  - SOMNOLENCE [None]
  - PROTHROMBIN TIME PROLONGED [None]
  - UNRESPONSIVE TO STIMULI [None]
  - COMA [None]
  - COMMUNICATION DISORDER [None]
  - ASCITES [None]
  - AGITATION [None]
  - DYSARTHRIA [None]
  - HEPATIC ENCEPHALOPATHY [None]
  - HEPATIC CIRRHOSIS [None]
  - DYSPNOEA [None]
  - CONFUSIONAL STATE [None]
  - HYPERTENSION [None]
